FAERS Safety Report 21194333 (Version 6)
Quarter: 2022Q3

REPORT INFORMATION
  Report Type: Spontaneous
  Country: JP (occurrence: JP)
  Receive Date: 20220810
  Receipt Date: 20220927
  Transmission Date: 20221027
  Serious: Yes (Other)
  Sender: FDA-Public Use
  Company Number: JP-CHUGAI-2022030614AA

PATIENT
  Age: 62 Year
  Sex: Female
  Weight: 68 kg

DRUGS (7)
  1. VABYSMO [Suspect]
     Active Substance: FARICIMAB-SVOA
     Indication: Diabetic retinal oedema
     Dosage: FARICIMAB WAS INITIATED IN THE RIGHT EYE
     Route: 031
     Dates: start: 20220714, end: 20220714
  2. VABYSMO [Suspect]
     Active Substance: FARICIMAB-SVOA
     Dosage: FARICIMAB WAS ADMINISTERED TO THE LEFT EYE
     Route: 031
     Dates: start: 20220721, end: 20220721
  3. PLAVIX [Concomitant]
     Active Substance: CLOPIDOGREL BISULFATE
     Indication: Cerebral artery stenosis
     Dosage: 75 MILLIGRAM, QD
     Route: 048
     Dates: start: 20220627
  4. INSULIN NOS [Concomitant]
     Active Substance: INSULIN NOS
     Dosage: UNK
     Route: 065
     Dates: start: 202201
  5. METGLUCO [Concomitant]
     Active Substance: METFORMIN HYDROCHLORIDE
     Dosage: UNK
     Route: 065
     Dates: start: 202201
  6. CARTEOLOL HYDROCHLORIDE\LATANOPROST [Concomitant]
     Active Substance: CARTEOLOL HYDROCHLORIDE\LATANOPROST
     Dosage: UNK
     Route: 065
  7. BRIMONIDINE TARTRATE\BRINZOLAMIDE [Concomitant]
     Active Substance: BRIMONIDINE TARTRATE\BRINZOLAMIDE
     Dosage: UNK
     Route: 065

REACTIONS (4)
  - Macular ischaemia [Not Recovered/Not Resolved]
  - Visual acuity reduced [Recovering/Resolving]
  - Anterior chamber inflammation [Recovering/Resolving]
  - Vitritis [Recovering/Resolving]

NARRATIVE: CASE EVENT DATE: 20220728
